FAERS Safety Report 7445146-9 (Version None)
Quarter: 2011Q2

REPORT INFORMATION
  Report Type: 
  Country: None (occurrence: None)
  Receive Date: 20110429
  Receipt Date: 20100401
  Transmission Date: 20111010
  Serious: No
  Sender: FDA-Public Use
  Company Number: US-BAYER-201019213NA

PATIENT
  Sex: Female

DRUGS (1)
  1. YAZ [Suspect]
     Dosage: UNK

REACTIONS (5)
  - URINARY INCONTINENCE [None]
  - PAIN [None]
  - POLLAKIURIA [None]
  - IRRITABILITY [None]
  - MOOD SWINGS [None]
